FAERS Safety Report 20572001 (Version 1)
Quarter: 2022Q1

REPORT INFORMATION
  Report Type: Spontaneous
  Country: US (occurrence: None)
  Receive Date: 20220308
  Receipt Date: 20220308
  Transmission Date: 20220423
  Serious: No
  Sender: FDA-Public Use
  Company Number: None

PATIENT
  Age: 78 Year
  Sex: Female

DRUGS (1)
  1. HUMIRA [Suspect]
     Active Substance: ADALIMUMAB
     Indication: Psoriasis
     Dosage: OTHER QUANTITY : INJ 80MG ON DAY 1;?OTHER FREQUENCY : 40MG SC ON DAY 8;?OTHER ROUTE : THEN 40MG EOW;
     Route: 050
     Dates: start: 202005

REACTIONS (1)
  - Urinary tract infection [None]
